FAERS Safety Report 8131196-6 (Version None)
Quarter: 2012Q1

REPORT INFORMATION
  Report Type: 
  Country: None (occurrence: None)
  Receive Date: 20120213
  Receipt Date: 20120202
  Transmission Date: 20120608
  Serious: Yes (Other)
  Sender: FDA-Public Use
  Company Number: CA-JNJFOC-20120201894

PATIENT
  Sex: Female
  Weight: 55 kg

DRUGS (12)
  1. POTASSIUM CHLORIDE [Concomitant]
     Route: 065
  2. HYDROCHLOROTHIAZIDE [Concomitant]
     Route: 065
  3. REMICADE [Suspect]
     Dosage: 26TH INFUSION
     Route: 042
     Dates: start: 20120202
  4. ALENDRONATE SODIUM [Concomitant]
     Route: 065
  5. NOVOSPIROTON [Concomitant]
     Route: 065
  6. VITAMIN B-12 [Concomitant]
     Route: 030
  7. REMICADE [Suspect]
     Dosage: 26TH INFUSION
     Route: 042
     Dates: start: 20111208
  8. SOLU-CORTEF [Concomitant]
     Indication: PREMEDICATION
     Route: 042
  9. REMICADE [Suspect]
     Indication: CROHN'S DISEASE
     Route: 042
  10. LIPITOR [Concomitant]
     Route: 065
  11. ACETYLSALICYLIC ACID SRT [Concomitant]
     Route: 065
  12. PANTOPRAZOLE [Concomitant]
     Route: 065

REACTIONS (1)
  - HAEMATINURIA [None]
